FAERS Safety Report 5373211-9 (Version None)
Quarter: 2007Q2

REPORT INFORMATION
  Report Type: 
  Country: None (occurrence: None)
  Receive Date: 20070628
  Receipt Date: 20070619
  Transmission Date: 20071010
  Serious: Yes (Disabling, Other)
  Sender: FDA-Public Use
  Company Number: PHEH2007US08535

PATIENT
  Age: 59 Year
  Sex: Female
  Weight: 89.342 kg

DRUGS (1)
  1. ZELNORM [Suspect]
     Indication: CONSTIPATION
     Dosage: 6 MG, BID
     Route: 048
     Dates: start: 20050101, end: 20070401

REACTIONS (4)
  - ANGIOPLASTY [None]
  - OEDEMA PERIPHERAL [None]
  - SPORTS INJURY [None]
  - SUBCLAVIAN VEIN THROMBOSIS [None]
